FAERS Safety Report 18086919 (Version 1)
Quarter: 2020Q3

REPORT INFORMATION
  Report Type: Spontaneous
  Country: DE (occurrence: DE)
  Receive Date: 20200729
  Receipt Date: 20200729
  Transmission Date: 20201103
  Serious: Yes (Other)
  Sender: FDA-Public Use
  Company Number: DE-TEVA-2020-DE-1808218

PATIENT
  Age: 15 Year
  Sex: Female
  Weight: 56 kg

DRUGS (2)
  1. ACITRETIN. [Suspect]
     Active Substance: ACITRETIN
     Indication: NETHERTON^S SYNDROME
     Dosage: 25 MILLIGRAM DAILY;
     Route: 065
  2. CEPHALEXIN. [Concomitant]
     Active Substance: CEPHALEXIN
     Indication: NETHERTON^S SYNDROME

REACTIONS (1)
  - Dermatitis exfoliative generalised [Recovered/Resolved]
